FAERS Safety Report 25443740 (Version 1)
Quarter: 2025Q2

REPORT INFORMATION
  Report Type: Report from Study
  Country: US (occurrence: US)
  Receive Date: 20250617
  Receipt Date: 20250617
  Transmission Date: 20250716
  Serious: Yes (Other)
  Sender: TAKEDA
  Company Number: US-TAKEDA-2025TUS054034

PATIENT
  Sex: Female

DRUGS (1)
  1. MARIBAVIR [Suspect]
     Active Substance: MARIBAVIR
     Indication: Renal transplant
     Dosage: 400 MILLIGRAM, BID
     Dates: start: 20250523

REACTIONS (3)
  - Pneumonia [Unknown]
  - White blood cell count decreased [Unknown]
  - Dysgeusia [Unknown]
